FAERS Safety Report 8557356-8 (Version None)
Quarter: 2012Q3

REPORT INFORMATION
  Report Type: 
  Country: None (occurrence: None)
  Receive Date: 20120801
  Receipt Date: 20120731
  Transmission Date: 20120928
  Serious: Yes (Other)
  Sender: FDA-Public Use
  Company Number: US-PFIZER INC-2012158705

PATIENT
  Sex: Female

DRUGS (1)
  1. XANAX [Suspect]
     Dosage: UNK

REACTIONS (6)
  - CEREBROVASCULAR ACCIDENT [None]
  - CONVULSION [None]
  - OVERDOSE [None]
  - PNEUMOTHORAX [None]
  - PNEUMONIA [None]
  - TRAUMATIC LUNG INJURY [None]
